FAERS Safety Report 8326389-9 (Version None)
Quarter: 2012Q2

REPORT INFORMATION
  Report Type: 
  Country: None (occurrence: None)
  Receive Date: 20120501
  Receipt Date: 20090706
  Transmission Date: 20120825
  Serious: No
  Sender: FDA-Public Use
  Company Number: US-TEVA-2009008126

PATIENT
  Sex: Female
  Weight: 58.566 kg

DRUGS (6)
  1. LEXAPRO [Concomitant]
     Indication: DEPRESSION
  2. THYROID MEDICATION [Concomitant]
     Indication: HYPOTHYROIDISM
  3. NUVIGIL [Suspect]
     Indication: SLEEP APNOEA SYNDROME
     Dosage: 150 MILLIGRAM;
     Route: 048
     Dates: start: 20090627, end: 20090701
  4. PROMETRIUM [Concomitant]
     Indication: HORMONE REPLACEMENT THERAPY
  5. NUVIGIL [Suspect]
     Dosage: 75 MILLIGRAM;
     Route: 048
     Dates: start: 20090701, end: 20090702
  6. VIVELLE [Concomitant]
     Indication: HORMONE REPLACEMENT THERAPY

REACTIONS (3)
  - DIZZINESS [None]
  - TREMOR [None]
  - FLATULENCE [None]
